FAERS Safety Report 13578696 (Version 1)
Quarter: 2017Q2

REPORT INFORMATION
  Report Type: Spontaneous
  Country: RU (occurrence: RU)
  Receive Date: 20170524
  Receipt Date: 20170524
  Transmission Date: 20170830
  Serious: Yes (Hospitalization, Disabling)
  Sender: FDA-Public Use
  Company Number: RU-ASTRAZENECA-2017SE53931

PATIENT
  Age: 60 Year
  Sex: Female

DRUGS (5)
  1. SYMBICORT [Suspect]
     Active Substance: BUDESONIDE\FORMOTEROL FUMARATE DIHYDRATE
     Indication: ASTHMA
     Dosage: 160/4.5 MICROGRAMS (120 DOSES) ONE INHALATION, TWO TIMES A DAY
     Route: 055
  2. GALVUS MET [Concomitant]
     Active Substance: METFORMIN HYDROCHLORIDE\VILDAGLIPTIN
  3. SALBUTAMOL [Concomitant]
     Active Substance: ALBUTEROL
  4. PHYSIOTENS [Concomitant]
     Active Substance: MOXONIDINE
  5. VALS H [Concomitant]

REACTIONS (4)
  - Meniscus injury [Recovered/Resolved]
  - Blood pressure increased [Not Recovered/Not Resolved]
  - Weight increased [Not Recovered/Not Resolved]
  - Bronchitis [Recovered/Resolved]
